FAERS Safety Report 7797100-5 (Version None)
Quarter: 2011Q4

REPORT INFORMATION
  Report Type: 
  Country: None (occurrence: None)
  Receive Date: 20111003
  Receipt Date: 20110922
  Transmission Date: 20120403
  Serious: Yes (Death)
  Sender: FDA-Public Use
  Company Number: 2011MA014396

PATIENT
  Age: 57 Year
  Sex: Female

DRUGS (15)
  1. BISOPROLOL [Concomitant]
  2. DIAZEPAM [Concomitant]
  3. URSODEXOYCHOLIC ACID [Concomitant]
  4. PIPERACILLIN AND TAZOBACTAM [Suspect]
     Indication: NEUTROPENIC INFECTION
     Dosage: 4.5 G;QID;IV
     Route: 042
     Dates: start: 20110810
  5. ZOPICLONE [Concomitant]
  6. OXYCONTIN [Concomitant]
  7. GENTAMICIN [Suspect]
     Indication: NEUTROPENIC INFECTION
     Dates: start: 20110810
  8. WARFARIN SODIUM [Concomitant]
  9. IRBESARTAN [Concomitant]
  10. FUROSEMIDE [Concomitant]
  11. ISOSORBIDE MONONITRATE [Concomitant]
  12. GEMCITABINE HYDROCHLORIDE [Suspect]
     Indication: PANCREATIC CARCINOMA
     Dosage: 1596 MG; IV
     Route: 042
     Dates: start: 20110729, end: 20110729
  13. PANTOPRAZOLE [Concomitant]
  14. SIMVASTATIN [Concomitant]
  15. DOTHIEPIN HYDROCHLORIDE [Concomitant]

REACTIONS (2)
  - TOXIC EPIDERMAL NECROLYSIS [None]
  - NEUTROPENIC SEPSIS [None]
